FAERS Safety Report 23105634 (Version 2)
Quarter: 2023Q4

REPORT INFORMATION
  Report Type: Spontaneous
  Country: US (occurrence: US)
  Receive Date: 20231025
  Receipt Date: 20231026
  Transmission Date: 20240109
  Serious: Yes (Hospitalization, Other)
  Sender: FDA-Public Use
  Company Number: US-PFIZER INC-202300336981

PATIENT
  Age: 74 Year
  Sex: Female
  Weight: 102.06 kg

DRUGS (4)
  1. XELJANZ XR [Suspect]
     Active Substance: TOFACITINIB CITRATE
     Indication: Psoriatic arthropathy
     Dosage: 11 MG, 1X/DAY
     Dates: end: 20230621
  2. XELJANZ XR [Suspect]
     Active Substance: TOFACITINIB CITRATE
     Dosage: 11 MG, 1X/DAY
     Dates: start: 20231003
  3. OZEMPIC [Suspect]
     Active Substance: SEMAGLUTIDE
     Indication: Glucose tolerance impaired
     Dosage: STARTED OUT LOW, 1MG, WHATEVER IT IS, ONCE A WEEK
  4. OZEMPIC [Suspect]
     Active Substance: SEMAGLUTIDE
     Indication: Prophylaxis

REACTIONS (6)
  - Sepsis [Unknown]
  - Cholelithiasis [Unknown]
  - Cholecystitis infective [Unknown]
  - Hepatitis [Unknown]
  - Abscess [Unknown]
  - Decreased immune responsiveness [Unknown]
